FAERS Safety Report 6973699-3 (Version None)
Quarter: 2010Q3

REPORT INFORMATION
  Report Type: 
  Country: None (occurrence: None)
  Receive Date: 20100907
  Receipt Date: 20100824
  Transmission Date: 20110219
  Serious: Yes (Hospitalization)
  Sender: FDA-Public Use
  Company Number: 2010017583

PATIENT
  Age: 53 Year
  Sex: Male

DRUGS (9)
  1. DALTEPARIN SODIUM [Suspect]
     Indication: LUNG NEOPLASM MALIGNANT
     Dates: start: 20100104, end: 20100204
  2. DEXAMETHASONE [Concomitant]
  3. CODEINE PHOSPHATE AND ACETAMINOPHEN [Concomitant]
  4. IBUPROFEN [Concomitant]
  5. LANSOPRAZOLE [Concomitant]
  6. RAMIPRIL [Concomitant]
  7. MAXOLON [Concomitant]
  8. CARBOPLATIN [Concomitant]
  9. ETOPOSIDE [Concomitant]

REACTIONS (1)
  - ARTHRITIS INFECTIVE [None]
